FAERS Safety Report 8437914-1 (Version None)
Quarter: 2012Q2

REPORT INFORMATION
  Report Type: 
  Country: None (occurrence: None)
  Receive Date: 20120614
  Receipt Date: 20120523
  Transmission Date: 20120825
  Serious: No
  Sender: FDA-Public Use
  Company Number: US-AMGEN-USASP2011056400

PATIENT
  Age: 84 Year
  Sex: Female
  Weight: 52.608 kg

DRUGS (9)
  1. GARLIC [Concomitant]
  2. MULTI-VITAMIN [Concomitant]
  3. PROLIA [Suspect]
     Dosage: 60 MG, UNK
     Route: 058
     Dates: start: 20110930
  4. NIACIN [Concomitant]
  5. CALCIUM [Concomitant]
  6. VITAMIN D [Concomitant]
     Dosage: 2000 IU, UNK
  7. OXYBUTYNIN [Concomitant]
  8. FISH OIL [Concomitant]
  9. PROLIA [Suspect]
     Indication: OSTEOPOROSIS POSTMENOPAUSAL
     Dosage: 60 MG, Q6MO
     Route: 058
     Dates: start: 20110331

REACTIONS (8)
  - DEFAECATION URGENCY [None]
  - DRY SKIN [None]
  - PAIN [None]
  - MICTURITION URGENCY [None]
  - PAIN IN EXTREMITY [None]
  - CONSTIPATION [None]
  - DIARRHOEA [None]
  - CERUMEN IMPACTION [None]
